FAERS Safety Report 5264883-8 (Version None)
Quarter: 2007Q1

REPORT INFORMATION
  Report Type: 
  Country: None (occurrence: None)
  Receive Date: 20070314
  Receipt Date: 20070308
  Transmission Date: 20070707
  Serious: Yes (Hospitalization)
  Sender: FDA-Public Use
  Company Number: HQWYE220309MAR07

PATIENT
  Age: 52 Year
  Sex: Male

DRUGS (3)
  1. INIPOMP [Suspect]
     Dosage: 20 MG EVERY
     Route: 048
     Dates: start: 20070115, end: 20070116
  2. ACETAMINOPHEN W/ PROPOXYPHENE HCL [Suspect]
     Route: 048
     Dates: start: 20070115, end: 20070117
  3. CELEBREX [Suspect]
     Route: 048
     Dates: start: 20070115, end: 20070116

REACTIONS (3)
  - DYSPNOEA [None]
  - LOSS OF CONSCIOUSNESS [None]
  - MALAISE [None]
